FAERS Safety Report 13816210 (Version 1)
Quarter: 2017Q3

REPORT INFORMATION
  Report Type: Spontaneous
  Country: US (occurrence: US)
  Receive Date: 20170731
  Receipt Date: 20170731
  Transmission Date: 20171127
  Serious: No
  Sender: FDA-Public Use
  Company Number: US-JNJFOC-20170325137

PATIENT
  Age: 57 Year
  Sex: Male
  Weight: 86.18 kg

DRUGS (3)
  1. ZYRTEC 10MG IR TABLET [Suspect]
     Active Substance: CETIRIZINE HYDROCHLORIDE
     Indication: RHINORRHOEA
     Dosage: 1 TABLET IN THE MORNING
     Route: 048
     Dates: start: 20170315, end: 20170322
  2. ZYRTEC 10MG IR TABLET [Suspect]
     Active Substance: CETIRIZINE HYDROCHLORIDE
     Indication: LACRIMATION INCREASED
     Dosage: 1 TABLET IN THE MORNING
     Route: 048
     Dates: start: 20170315, end: 20170322
  3. ZYRTEC 10MG IR TABLET [Suspect]
     Active Substance: CETIRIZINE HYDROCHLORIDE
     Indication: EYE PRURITUS
     Dosage: 1 TABLET IN THE MORNING
     Route: 048
     Dates: start: 20170315, end: 20170322

REACTIONS (1)
  - Drug ineffective [Unknown]
